FAERS Safety Report 6735866-3 (Version None)
Quarter: 2010Q2

REPORT INFORMATION
  Report Type: 
  Country: None (occurrence: None)
  Receive Date: 20100521
  Receipt Date: 20100513
  Transmission Date: 20101027
  Serious: Yes (Disabling)
  Sender: FDA-Public Use
  Company Number: A0859591A

PATIENT
  Age: 21 Year
  Sex: Female

DRUGS (3)
  1. LAMICTAL [Suspect]
     Indication: BIPOLAR DISORDER
     Dosage: 50MG TWICE PER DAY
     Route: 048
     Dates: start: 20070501, end: 20100506
  2. SYNTHROID [Concomitant]
  3. ZOLOFT [Concomitant]

REACTIONS (3)
  - DIPLOPIA [None]
  - HEADACHE [None]
  - VISION BLURRED [None]
